FAERS Safety Report 20131170 (Version 1)
Quarter: 2021Q4

REPORT INFORMATION
  Report Type: Report from Study
  Country: CA (occurrence: CA)
  Receive Date: 20211130
  Receipt Date: 20211130
  Transmission Date: 20220303
  Serious: Yes (Other)
  Sender: FDA-Public Use
  Company Number: CA-PFIZER INC-202101599256

PATIENT
  Age: 77 Year
  Sex: Male

DRUGS (15)
  1. RITUXIMAB [Suspect]
     Active Substance: RITUXIMAB
     Indication: Rheumatoid arthritis
     Dosage: 1000 MG
     Route: 041
  2. BENADRYL [Concomitant]
     Active Substance: DIPHENHYDRAMINE HYDROCHLORIDE
     Indication: Premedication
     Dosage: 50 MG
     Route: 048
  3. COVID-19 VACCINE NOS [Concomitant]
     Active Substance: COVID-19 VACCINE NOS
     Dosage: UNK
  4. DOCUSATE [Concomitant]
     Active Substance: DOCUSATE
     Dosage: UNK
  5. FOLIC ACID [Concomitant]
     Active Substance: FOLIC ACID
     Dosage: UNK
  6. GLICLAZIDE [Concomitant]
     Active Substance: GLICLAZIDE
     Indication: Diabetes mellitus
     Dosage: UNK
  7. IRON [Concomitant]
     Active Substance: IRON
     Dosage: UNK
  8. METFORMIN [Concomitant]
     Active Substance: METFORMIN HYDROCHLORIDE
     Dosage: UNK
  9. METHOTREXATE [Concomitant]
     Active Substance: METHOTREXATE
     Dosage: UNK
     Route: 048
  10. METHYLPREDNISOLONE SODIUM SUCCINATE [Concomitant]
     Active Substance: METHYLPREDNISOLONE SODIUM SUCCINATE
     Indication: Premedication
     Dosage: 100 MG
     Route: 042
  11. PANTOPRAZOLE [Concomitant]
     Active Substance: PANTOPRAZOLE
     Dosage: UNK
  12. TYLENOL [Concomitant]
     Active Substance: ACETAMINOPHEN
     Indication: Premedication
     Dosage: UNK
     Route: 065
  13. TYLENOL [Concomitant]
     Active Substance: ACETAMINOPHEN
     Dosage: 650 MG
     Route: 048
  14. UMECLIDINIUM BROMIDE [Concomitant]
     Active Substance: UMECLIDINIUM BROMIDE
     Indication: Emphysema
     Dosage: UNK
  15. XARELTO [Concomitant]
     Active Substance: RIVAROXABAN
     Dosage: UNK

REACTIONS (2)
  - Depression [Unknown]
  - Dementia [Unknown]
